FAERS Safety Report 12398844 (Version 1)
Quarter: 2016Q2

REPORT INFORMATION
  Report Type: Spontaneous
  Country: GB (occurrence: GB)
  Receive Date: 20160524
  Receipt Date: 20160524
  Transmission Date: 20160815
  Serious: Yes (Life-Threatening, Hospitalization, Other)
  Sender: FDA-Public Use
  Company Number: GB-ELI_LILLY_AND_COMPANY-GB201605006697

PATIENT
  Age: 36 Year
  Sex: Female

DRUGS (3)
  1. LOGYNON [Concomitant]
     Indication: PRODUCT USED FOR UNKNOWN INDICATION
     Dosage: UNK UNK, UNKNOWN
     Route: 065
  2. FLUOXETINE [Suspect]
     Active Substance: FLUOXETINE HYDROCHLORIDE
     Indication: DEPRESSION
     Dosage: 20 MG, QD
     Route: 048
     Dates: start: 20160428, end: 20160501
  3. LANSOPRAZOLE. [Concomitant]
     Active Substance: LANSOPRAZOLE
     Indication: PRODUCT USED FOR UNKNOWN INDICATION
     Dosage: UNK UNK, UNKNOWN
     Route: 065

REACTIONS (8)
  - Drug-induced liver injury [Unknown]
  - Hepatitis E [Unknown]
  - Influenza like illness [Recovered/Resolved]
  - Liver injury [Not Recovered/Not Resolved]
  - Autoimmune hepatitis [Unknown]
  - Blood glucose decreased [Unknown]
  - Jaundice [Recovered/Resolved]
  - Prothrombin time prolonged [Unknown]

NARRATIVE: CASE EVENT DATE: 20160430
